FAERS Safety Report 4803386-9 (Version None)
Quarter: 2005Q4

REPORT INFORMATION
  Report Type: 
  Country: None (occurrence: None)
  Receive Date: 20051019
  Receipt Date: 20051007
  Transmission Date: 20060501
  Serious: Yes (Hospitalization)
  Sender: FDA-Public Use
  Company Number: JP-JNJFOC-20050801371

PATIENT
  Sex: Female

DRUGS (8)
  1. RISPERIDONE [Suspect]
     Route: 048
  2. RISPERIDONE [Suspect]
     Route: 048
  3. RISPERIDONE [Suspect]
     Indication: SCHIZOPHRENIA
     Route: 048
  4. LITHIUM CARBONATE [Concomitant]
     Route: 048
  5. SENNOSIDE [Concomitant]
     Route: 048
  6. SENNOSIDE [Concomitant]
     Route: 048
  7. SENNOSIDE [Concomitant]
     Indication: CONSTIPATION
     Route: 048
  8. FLUNITRAZEPAM [Concomitant]
     Indication: INSOMNIA
     Route: 048

REACTIONS (1)
  - RECTAL PROLAPSE [None]
